FAERS Safety Report 6267775-0 (Version None)
Quarter: 2009Q3

REPORT INFORMATION
  Report Type: 
  Country: None (occurrence: None)
  Receive Date: 20090714
  Receipt Date: 20090629
  Transmission Date: 20100115
  Serious: Yes (Hospitalization)
  Sender: FDA-Public Use
  Company Number: US-JNJFOC-20090704009

PATIENT
  Age: 18 Year
  Sex: Male

DRUGS (2)
  1. TYLENOL [Suspect]
  2. TYLENOL [Suspect]
     Indication: BACK PAIN

REACTIONS (3)
  - ABDOMINAL PAIN UPPER [None]
  - HYPERVENTILATION [None]
  - INTENTIONAL OVERDOSE [None]
